FAERS Safety Report 25514784 (Version 4)
Quarter: 2025Q4

REPORT INFORMATION
  Report Type: Report from Study
  Country: US (occurrence: US)
  Receive Date: 20250703
  Receipt Date: 20251003
  Transmission Date: 20260117
  Serious: No
  Sender: MALLINCKRODT
  Company Number: US-MALLINCKRODT-MNK202502614

PATIENT
  Sex: Female

DRUGS (1)
  1. CORTICOTROPIN [Suspect]
     Active Substance: CORTICOTROPIN
     Indication: Dry eye
     Dosage: UNKNOWN

REACTIONS (8)
  - Dry eye [Recovering/Resolving]
  - Condition aggravated [Recovering/Resolving]
  - Ill-defined disorder [Unknown]
  - Overweight [Recovering/Resolving]
  - Visual impairment [Unknown]
  - Photophobia [Unknown]
  - Bronchitis [Recovering/Resolving]
  - Therapy non-responder [Unknown]
